FAERS Safety Report 7115099-1 (Version None)
Quarter: 2010Q4

REPORT INFORMATION
  Report Type: 
  Country: None (occurrence: None)
  Receive Date: 20101122
  Receipt Date: 20101115
  Transmission Date: 20110411
  Serious: Yes (Death, Hospitalization, Disabling)
  Sender: FDA-Public Use
  Company Number: JP-CELGENEUS-087-21880-10090429

PATIENT
  Sex: Female
  Weight: 43.3 kg

DRUGS (17)
  1. REVLIMID [Suspect]
     Indication: MULTIPLE MYELOMA
     Route: 048
     Dates: start: 20100730, end: 20100820
  2. REVLIMID [Suspect]
     Route: 048
     Dates: start: 20100827, end: 20100901
  3. LENADEX [Suspect]
     Indication: MULTIPLE MYELOMA
     Route: 048
     Dates: start: 20100730, end: 20100819
  4. LENADEX [Suspect]
     Route: 048
     Dates: start: 20100820, end: 20100820
  5. LENADEX [Suspect]
     Route: 048
     Dates: start: 20100827, end: 20100901
  6. GASTER [Concomitant]
     Indication: PROPHYLAXIS
     Route: 048
     Dates: end: 20100827
  7. GASTER [Concomitant]
     Route: 048
     Dates: start: 20100827, end: 20100911
  8. ZYLORIC [Concomitant]
     Indication: PROPHYLAXIS
     Route: 048
     Dates: end: 20100827
  9. ZYLORIC [Concomitant]
     Route: 048
     Dates: start: 20100827, end: 20100911
  10. BAKTAR [Concomitant]
     Indication: PROPHYLAXIS
     Route: 048
     Dates: end: 20100827
  11. BAKTAR [Concomitant]
     Route: 048
     Dates: start: 20100827, end: 20100911
  12. CYANOCOBALAMIN [Concomitant]
     Route: 048
     Dates: end: 20100827
  13. CYANOCOBALAMIN [Concomitant]
     Route: 048
     Dates: start: 20100827, end: 20100911
  14. LASIX [Concomitant]
     Indication: MULTIPLE MYELOMA
     Route: 048
     Dates: end: 20100827
  15. LASIX [Concomitant]
     Route: 048
     Dates: start: 20100827, end: 20100911
  16. MAGMITT [Concomitant]
     Indication: PROPHYLAXIS
     Route: 048
     Dates: end: 20100827
  17. MAGMITT [Concomitant]
     Route: 048
     Dates: start: 20100827, end: 20100911

REACTIONS (4)
  - CYTOMEGALOVIRUS INFECTION [None]
  - MULTIPLE MYELOMA [None]
  - RENAL FAILURE [None]
  - SPINAL COMPRESSION FRACTURE [None]
